FAERS Safety Report 8557389-1 (Version None)
Quarter: 2012Q3

REPORT INFORMATION
  Report Type: 
  Country: None (occurrence: None)
  Receive Date: 20120801
  Receipt Date: 20120604
  Transmission Date: 20120928
  Serious: No
  Sender: FDA-Public Use
  Company Number: US-COVIDIEN/TYCO HEALTHCARE/MALLINCKRODT-T201202470

PATIENT
  Age: 57 Year
  Sex: Female

DRUGS (2)
  1. FENTANYL CITRATE [Suspect]
     Indication: MIGRAINE
     Dosage: 1 PER DAY
     Route: 048
     Dates: end: 20120530
  2. IBUPROFEN [Concomitant]
     Indication: HEADACHE
     Dosage: UNK

REACTIONS (3)
  - WITHDRAWAL SYNDROME [None]
  - VOMITING [None]
  - MIGRAINE [None]
